FAERS Safety Report 8484101-7 (Version None)
Quarter: 2012Q3

REPORT INFORMATION
  Report Type: 
  Country: None (occurrence: None)
  Receive Date: 20120703
  Receipt Date: 20120622
  Transmission Date: 20120928
  Serious: Yes (Other)
  Sender: FDA-Public Use
  Company Number: US-CELGENEUS-163-50794-12063381

PATIENT
  Sex: Male
  Weight: 76.272 kg

DRUGS (7)
  1. VIDAZA [Suspect]
     Route: 058
     Dates: start: 20120408
  2. ASPIRIN [Concomitant]
     Dosage: 325 MILLIGRAM
     Route: 065
  3. ASPIRIN [Concomitant]
     Dosage: 81 MILLIGRAM
     Route: 065
  4. ASPIRIN [Concomitant]
     Dosage: 81 MILLIGRAM
     Route: 065
  5. ANTI NAUSEA MEDICATION [Concomitant]
     Indication: NAUSEA
     Route: 065
  6. VALACYCLOVIR HYDROCHLORIDE [Concomitant]
     Dosage: 500 MILLIGRAM
     Route: 065
  7. VIDAZA [Suspect]

REACTIONS (7)
  - WEIGHT INCREASED [None]
  - TOOTH DISORDER [None]
  - TRANSFUSION [None]
  - INJECTION SITE PAIN [None]
  - NAUSEA [None]
  - PIGMENTATION DISORDER [None]
  - JOINT SWELLING [None]
